FAERS Safety Report 5408407-0 (Version None)
Quarter: 2007Q3

REPORT INFORMATION
  Report Type: 
  Country: None (occurrence: None)
  Receive Date: 20070808
  Receipt Date: 20070806
  Transmission Date: 20080115
  Serious: Yes (Hospitalization)
  Sender: FDA-Public Use
  Company Number: US-BRISTOL-MYERS SQUIBB COMPANY-13869730

PATIENT
  Age: 67 Year
  Sex: Male
  Weight: 98 kg

DRUGS (3)
  1. CETUXIMAB [Suspect]
     Indication: NEOPLASM MALIGNANT
     Dosage: 400MG/M2 IV X 1WK PRIOR TO CHEMO/RT THEN 250MG/M2 IV WKLY X 7 DURING RADIATION
     Dates: end: 20070423
  2. CISPLATIN [Suspect]
     Indication: NEOPLASM MALIGNANT
     Dosage: 100MG/M2 IV  DAY 1 + 22
     Dates: start: 20070402, end: 20070402
  3. RADIATION THERAPY [Suspect]
     Indication: NEOPLASM MALIGNANT
     Dosage: TOTAL DOSE UPTO 20APR2007 IS 7000CGY
     Dates: end: 20070420

REACTIONS (9)
  - BLOOD CREATININE [None]
  - FEEDING TUBE COMPLICATION [None]
  - HAEMODIALYSIS [None]
  - HYPERKALAEMIA [None]
  - HYPOGLYCAEMIA [None]
  - NAUSEA [None]
  - RENAL FAILURE [None]
  - TREMOR [None]
  - VOMITING [None]
